FAERS Safety Report 12873329 (Version 2)
Quarter: 2016Q4

REPORT INFORMATION
  Report Type: Spontaneous
  Country: US (occurrence: US)
  Receive Date: 20161021
  Receipt Date: 20161212
  Transmission Date: 20170207
  Serious: Yes (Other)
  Sender: FDA-Public Use
  Company Number: US-BAYER-2016-201349

PATIENT
  Sex: Female

DRUGS (3)
  1. MIRENA [Suspect]
     Active Substance: LEVONORGESTREL
     Indication: CONTRACEPTION
     Dosage: 20 MCG/24HR, CONT
     Route: 015
     Dates: start: 201602, end: 201611
  2. MIRENA [Suspect]
     Active Substance: LEVONORGESTREL
     Dosage: 20 MCG/24HR, CONT
     Route: 015
     Dates: start: 201602, end: 201611
  3. LUTERA [Suspect]
     Active Substance: ETHINYL ESTRADIOL\LEVONORGESTREL

REACTIONS (4)
  - Genital haemorrhage [Recovered/Resolved]
  - Device expulsion [None]
  - Abdominal pain lower [None]
  - Amenorrhoea [Recovered/Resolved]

NARRATIVE: CASE EVENT DATE: 2016
